FAERS Safety Report 14595671 (Version 1)
Quarter: 2018Q1

REPORT INFORMATION
  Report Type: Spontaneous
  Country: US (occurrence: US)
  Receive Date: 20180303
  Receipt Date: 20180303
  Transmission Date: 20180509
  Serious: No
  Sender: FDA-Public Use
  Company Number: US-009507513-1802USA009136

PATIENT
  Sex: Female

DRUGS (1)
  1. ZENHALE [Suspect]
     Active Substance: FORMOTEROL FUMARATE\MOMETASONE FUROATE
     Dosage: 200MCG/5MCG, TWICE DAILY
     Route: 055

REACTIONS (2)
  - Drug dose omission [Unknown]
  - Product quality issue [Unknown]
